FAERS Safety Report 7527907-0 (Version None)
Quarter: 2011Q2

REPORT INFORMATION
  Report Type: 
  Country: None (occurrence: None)
  Receive Date: 20110607
  Receipt Date: 20030415
  Transmission Date: 20111010
  Serious: Yes (Death)
  Sender: FDA-Public Use
  Company Number: PHEH2003US03147

PATIENT
  Sex: Female

DRUGS (6)
  1. DEPAKOTE [Concomitant]
  2. POTASSIUM CHLORIDE [Concomitant]
  3. SYNTHROID [Concomitant]
  4. CLOZARIL [Suspect]
     Indication: SCHIZOPHRENIA
     Dosage: 700 MG/DAY
     Route: 048
     Dates: start: 19990201, end: 20030201
  5. FOLIC ACID [Concomitant]
  6. PERIDOS [Concomitant]

REACTIONS (1)
  - DEATH [None]
